FAERS Safety Report 21266685 (Version 1)
Quarter: 2022Q3

REPORT INFORMATION
  Report Type: Spontaneous
  Country: US (occurrence: US)
  Receive Date: 20220829
  Receipt Date: 20220829
  Transmission Date: 20221027
  Serious: Yes (Death)
  Sender: FDA-Public Use
  Company Number: US-THEA-2022001362

PATIENT
  Sex: Female

DRUGS (2)
  1. ZIOPTAN [Suspect]
     Active Substance: TAFLUPROST
     Indication: Product used for unknown indication
     Dosage: BOTH EYES EVERY NIGHT
     Route: 047
  2. COSOPT PF [Suspect]
     Active Substance: DORZOLAMIDE HYDROCHLORIDE\TIMOLOL MALEATE
     Indication: Product used for unknown indication
     Dosage: BOTH EYES
     Route: 047

REACTIONS (1)
  - Death [Fatal]
